FAERS Safety Report 4829656-6 (Version None)
Quarter: 2005Q4

REPORT INFORMATION
  Report Type: 
  Country: None (occurrence: None)
  Receive Date: 20051027
  Receipt Date: 20050509
  Transmission Date: 20060501
  Serious: Yes (Other)
  Sender: FDA-Public Use
  Company Number: HQWYE690612MAY05

PATIENT
  Age: 56 Year
  Sex: Female
  Weight: 54.03 kg

DRUGS (7)
  1. PREMARIN [Suspect]
     Indication: HYSTERECTOMY
     Dosage: SEE IMAGE
     Route: 048
     Dates: start: 19850101, end: 20020301
  2. PREMARIN [Suspect]
     Indication: HYSTERECTOMY
     Dosage: SEE IMAGE
     Route: 048
     Dates: start: 20040301
  3. PROGESTERONE [Concomitant]
  4. MULTIVITAMINS (ASCORBIC ACID/ERGOCALCIFEROL/FOLIC ACID/NICOTINAMIDE/PA [Concomitant]
  5. COLACE (DOCUSATE SODIUM) [Concomitant]
  6. LACTULOSE [Concomitant]
  7. METOCLOPRAMIDE [Concomitant]

REACTIONS (2)
  - COELIAC DISEASE [None]
  - UTERINE CANCER [None]
